FAERS Safety Report 10625407 (Version 1)
Quarter: 2014Q4

REPORT INFORMATION
  Report Type: Spontaneous
  Country: US (occurrence: None)
  Receive Date: 20141202
  Receipt Date: 20141202
  Transmission Date: 20150529
  Serious: No
  Sender: FDA-Public Use
  Company Number: 2014-00103

PATIENT
  Age: 91 Year
  Sex: Male

DRUGS (3)
  1. ZICAM COLD REMEDY NASAL SWABS [Suspect]
     Active Substance: ZINC GLUCONATE
     Route: 045
  2. OXYGEN. [Concomitant]
     Active Substance: OXYGEN
  3. ZICAM COLD REMEDY NASAL SWABS [Suspect]
     Active Substance: ZINC GLUCONATE
     Indication: PROPHYLAXIS
     Route: 045

REACTIONS (1)
  - Anosmia [None]
